FAERS Safety Report 5021824-6 (Version None)
Quarter: 2006Q2

REPORT INFORMATION
  Report Type: 
  Country: None (occurrence: None)
  Receive Date: 20060609
  Receipt Date: 20060602
  Transmission Date: 20061013
  Serious: Yes (Other)
  Sender: FDA-Public Use
  Company Number: SE-JNJFOC-20060600734

PATIENT
  Age: 50 Year
  Sex: Female

DRUGS (16)
  1. REMICADE [Suspect]
     Dosage: 10TH INFUSION
     Route: 042
  2. REMICADE [Suspect]
     Indication: CROHN'S DISEASE
     Route: 042
  3. AZATHIOPRINE [Concomitant]
  4. PANTOPRAZOLE SODIUM [Concomitant]
  5. BEVIPLEX [Concomitant]
  6. BETOLVEX [Concomitant]
  7. DUROFERON [Concomitant]
  8. EMGESAN [Concomitant]
  9. IMOVANE [Concomitant]
  10. CITODON [Concomitant]
  11. CITODON [Concomitant]
  12. XYLOPROCT [Concomitant]
  13. XYLOPROCT [Concomitant]
  14. XYLOPROCT [Concomitant]
  15. XYLOPROCT [Concomitant]
  16. METADON [Concomitant]

REACTIONS (1)
  - DEAFNESS NEUROSENSORY [None]
